FAERS Safety Report 4995807-6 (Version None)
Quarter: 2006Q2

REPORT INFORMATION
  Report Type: 
  Country: None (occurrence: None)
  Receive Date: 20060504
  Receipt Date: 20060425
  Transmission Date: 20061013
  Serious: Yes (Death)
  Sender: FDA-Public Use
  Company Number: L06-GER-01322-05

PATIENT
  Age: 49 Year
  Sex: Female

DRUGS (4)
  1. CARBAMAZEPINE [Suspect]
  2. THEOPHYLLINE [Suspect]
  3. AMITRIPTYLINE HCL [Suspect]
  4. TETRAZEPAM [Suspect]

REACTIONS (3)
  - HEPATIC FAILURE [None]
  - HEPATIC NECROSIS [None]
  - RESPIRATORY FAILURE [None]
